FAERS Safety Report 19013918 (Version 1)
Quarter: 2021Q1

REPORT INFORMATION
  Report Type: Spontaneous
  Country: AR (occurrence: AR)
  Receive Date: 20210316
  Receipt Date: 20210316
  Transmission Date: 20210420
  Serious: Yes (Hospitalization)
  Sender: FDA-Public Use
  Company Number: AR-ABBVIE-21K-007-3808334-00

PATIENT
  Age: 48 Year
  Sex: Male

DRUGS (12)
  1. EPLERENONE. [Interacting]
     Active Substance: EPLERENONE
     Indication: LEFT VENTRICULAR DYSFUNCTION
     Route: 065
     Dates: end: 20181213
  2. ATORVASTATIN [Concomitant]
     Active Substance: ATORVASTATIN
     Indication: ACUTE MYOCARDIAL INFARCTION
  3. RITONAVIR. [Suspect]
     Active Substance: RITONAVIR
     Indication: HIV TEST POSITIVE
     Route: 048
     Dates: start: 2008, end: 20181213
  4. FOSAMPRENAVIR [Interacting]
     Active Substance: FOSAMPRENAVIR
     Indication: HIV TEST POSITIVE
     Route: 065
     Dates: start: 2008, end: 20181213
  5. EMTRICITABINE;TENOFOVIR [Concomitant]
     Active Substance: EMTRICITABINE\TENOFOVIR
     Indication: HIV TEST POSITIVE
     Dates: start: 2008, end: 20181213
  6. CARVEDILOL. [Concomitant]
     Active Substance: CARVEDILOL
     Indication: ACUTE MYOCARDIAL INFARCTION
  7. CLOPIDOGREL [Concomitant]
     Active Substance: CLOPIDOGREL BISULFATE
     Indication: ACUTE MYOCARDIAL INFARCTION
  8. DOLUTEGRAVIR [Concomitant]
     Active Substance: DOLUTEGRAVIR
     Indication: HIV TEST POSITIVE
  9. ASPIRIN [ACETYLSALICYLIC ACID] [Concomitant]
     Active Substance: ASPIRIN
     Indication: ACUTE MYOCARDIAL INFARCTION
  10. LOSARTAN. [Concomitant]
     Active Substance: LOSARTAN
     Indication: ACUTE MYOCARDIAL INFARCTION
  11. EPLERENONE. [Interacting]
     Active Substance: EPLERENONE
     Route: 065
     Dates: start: 20190114
  12. EMTRICITABINE;TENOFOVIR [Concomitant]
     Active Substance: EMTRICITABINE\TENOFOVIR
     Dates: start: 20181228

REACTIONS (2)
  - Drug interaction [Unknown]
  - Hyperkalaemia [Recovered/Resolved]

NARRATIVE: CASE EVENT DATE: 201812
